FAERS Safety Report 9179102 (Version 1)
Quarter: 2013Q1

REPORT INFORMATION
  Report Type: Spontaneous
  Country: US (occurrence: US)
  Receive Date: 20130321
  Receipt Date: 20130321
  Transmission Date: 20140127
  Serious: Yes (Hospitalization)
  Sender: FDA-Public Use
  Company Number: US-GLAXOSMITHKLINE-A0756262A

PATIENT
  Age: 79 Year
  Sex: Male

DRUGS (2)
  1. AVANDIA [Suspect]
     Indication: TYPE 2 DIABETES MELLITUS
     Dosage: 8MG PER DAY
     Route: 048
     Dates: start: 20020124, end: 200610
  2. INDOMETHACIN [Concomitant]
     Dates: end: 200610

REACTIONS (2)
  - Angina pectoris [Not Recovered/Not Resolved]
  - Cardiac failure congestive [Unknown]
